FAERS Safety Report 7540714-8 (Version None)
Quarter: 2011Q2

REPORT INFORMATION
  Report Type: 
  Country: None (occurrence: None)
  Receive Date: 20110603
  Receipt Date: 20110523
  Transmission Date: 20111010
  Serious: Yes (Other)
  Sender: FDA-Public Use
  Company Number: 2011SP023221

PATIENT

DRUGS (5)
  1. DIAZEPAM [Suspect]
     Indication: PRODUCT USED FOR UNKNOWN INDICATION
  2. DIGOXIN [Suspect]
  3. AMITRIPTYLINE HCL [Suspect]
  4. IRON SUPPLEMENTS (IRON PREPARATIONS) [Suspect]
  5. CHLORPHENIRAMINE MALEATE [Suspect]
     Indication: BENIGN PROSTATIC HYPERPLASIA

REACTIONS (1)
  - NO ADVERSE EVENT [None]
